FAERS Safety Report 11183727 (Version 1)
Quarter: 2015Q2

REPORT INFORMATION
  Report Type: Spontaneous
  Country: US (occurrence: US)
  Receive Date: 20150612
  Receipt Date: 20150612
  Transmission Date: 20150821
  Serious: Yes (Hospitalization)
  Sender: FDA-Public Use
  Company Number: US-AMGEN-USASP2015056942

PATIENT
  Age: 71 Year
  Sex: Male

DRUGS (2)
  1. ENBREL [Suspect]
     Active Substance: ETANERCEPT
     Indication: PSORIASIS
  2. ENBREL [Suspect]
     Active Substance: ETANERCEPT
     Indication: PSORIATIC ARTHROPATHY
     Dosage: 50 MG, QWK
     Route: 065
     Dates: start: 20050501, end: 201404

REACTIONS (8)
  - Musculoskeletal pain [Recovered/Resolved]
  - Hip arthroplasty [Recovered/Resolved]
  - Gastroenteritis salmonella [Recovered/Resolved]
  - Arthritis [Not Recovered/Not Resolved]
  - Implant site infection [Recovered/Resolved]
  - Food poisoning [Recovered/Resolved]
  - Chest pain [Recovered/Resolved]
  - Skin plaque [Not Recovered/Not Resolved]

NARRATIVE: CASE EVENT DATE: 2014
